FAERS Safety Report 13152299 (Version 4)
Quarter: 2017Q4

REPORT INFORMATION
  Report Type: Spontaneous
  Country: US (occurrence: US)
  Receive Date: 20170125
  Receipt Date: 20171102
  Transmission Date: 20180320
  Serious: No
  Sender: FDA-Public Use
  Company Number: US-BAUSCH-BL-2017-001863

PATIENT
  Sex: Female

DRUGS (1)
  1. DEMSER [Suspect]
     Active Substance: METYROSINE
     Indication: PRODUCT USED FOR UNKNOWN INDICATION
     Dosage: 120 PILLS FOR A 30 DAY PERIOD PRESCRIBED
     Route: 065

REACTIONS (2)
  - Treatment noncompliance [Unknown]
  - No adverse event [Unknown]
